FAERS Safety Report 4502868-7 (Version None)
Quarter: 2004Q4

REPORT INFORMATION
  Report Type: 
  Country: None (occurrence: None)
  Receive Date: 20041112
  Receipt Date: 20041102
  Transmission Date: 20050328
  Serious: Yes (Other)
  Sender: FDA-Public Use
  Company Number: HQWYE271307JUN04

PATIENT
  Age: 53 Year
  Sex: Female
  Weight: 113.5 kg

DRUGS (16)
  1. PREMPRO [Suspect]
     Indication: HORMONE REPLACEMENT THERAPY
  2. PRILOSEC [Concomitant]
  3. HYZAAR [Concomitant]
  4. POTASSIUM (POTASSIUM) [Concomitant]
  5. TOPAMAX [Concomitant]
  6. MOBIC [Concomitant]
  7. ULTRACET [Concomitant]
  8. NEURONTIN [Concomitant]
  9. VERAPAMIL [Concomitant]
  10. CELEBREX [Concomitant]
  11. CARAFATE [Concomitant]
  12. BEXTRA [Concomitant]
  13. CARISOPRODOL [Concomitant]
  14. NAPRELAN (NAPROXEN) [Concomitant]
  15. DEMADEX [Concomitant]
  16. VIOXX [Concomitant]

REACTIONS (8)
  - ARTHRALGIA [None]
  - DYSPHAGIA [None]
  - FATIGUE [None]
  - JOINT SWELLING [None]
  - RAYNAUD'S PHENOMENON [None]
  - SJOGREN'S SYNDROME [None]
  - SPEECH DISORDER [None]
  - SYSTEMIC LUPUS ERYTHEMATOSUS [None]
